FAERS Safety Report 5097653-4 (Version None)
Quarter: 2006Q3

REPORT INFORMATION
  Report Type: 
  Country: None (occurrence: None)
  Receive Date: 20060901
  Receipt Date: 20060815
  Transmission Date: 20061208
  Serious: Yes (Hospitalization)
  Sender: FDA-Public Use
  Company Number: US200608003023

PATIENT
  Age: 73 Year
  Sex: Female

DRUGS (9)
  1. FORTEO [Suspect]
     Indication: OSTEOPOROSIS
     Dates: start: 20040801, end: 20060801
  2. FORTEO [Concomitant]
  3. TRENTAL [Concomitant]
  4. LANTUS [Concomitant]
  5. TOPROL-XL [Concomitant]
  6. HYDROCHLORZIDE (HYDROCHLOROTHIAZIDE) [Concomitant]
  7. FUROSEMIDE [Concomitant]
  8. DIOVAN [Concomitant]
  9. COUMADIN [Concomitant]

REACTIONS (6)
  - DELAYED RECOVERY FROM ANAESTHESIA [None]
  - DISORIENTATION [None]
  - FALL [None]
  - MUSCULOSKELETAL PAIN [None]
  - PATELLA FRACTURE [None]
  - UPPER LIMB FRACTURE [None]
